FAERS Safety Report 16177850 (Version 1)
Quarter: 2019Q2

REPORT INFORMATION
  Report Type: Spontaneous
  Country: CZ (occurrence: CZ)
  Receive Date: 20190410
  Receipt Date: 20190410
  Transmission Date: 20190711
  Serious: Yes (Other)
  Sender: FDA-Public Use
  Company Number: CZ-GLAXOSMITHKLINE-CZ2019GSK061087

PATIENT
  Age: 66 Year
  Sex: Male

DRUGS (3)
  1. PARACETAMOLUM [Suspect]
     Active Substance: ACETAMINOPHEN
     Dosage: 6 DF, 1D, TABLETS
  2. DICLOFENAC [Suspect]
     Active Substance: DICLOFENAC
     Indication: PRODUCT USED FOR UNKNOWN INDICATION
     Dosage: 50 MG, BID
  3. PARACETAMOLUM [Suspect]
     Active Substance: ACETAMINOPHEN
     Indication: PAIN
     Dosage: UNK

REACTIONS (7)
  - Gastric mucosal lesion [Unknown]
  - Abdominal pain upper [Unknown]
  - Gastric haemorrhage [Unknown]
  - Therapeutic product effect incomplete [Unknown]
  - Drug ineffective [Unknown]
  - Discoloured vomit [Unknown]
  - Hypertension [Unknown]
